FAERS Safety Report 7804145-5 (Version None)
Quarter: 2011Q4

REPORT INFORMATION
  Report Type: 
  Country: None (occurrence: None)
  Receive Date: 20111010
  Receipt Date: 20110829
  Transmission Date: 20120403
  Serious: Yes (Hospitalization)
  Sender: FDA-Public Use
  Company Number: NL-ROXANE LABORATORIES, INC.-2011-DE-04883GD

PATIENT
  Age: 70 Year
  Sex: Female

DRUGS (2)
  1. CORTICOSTEROIDS [Concomitant]
     Indication: PSORIASIS
     Dosage: ROUTE: LOCAL
  2. ORAMORPH SR [Suspect]
     Indication: BACK PAIN
     Dosage: 10 MG

REACTIONS (3)
  - TOXIC EPIDERMAL NECROLYSIS [None]
  - ACUTE GENERALISED EXANTHEMATOUS PUSTULOSIS [None]
  - PYREXIA [None]
